FAERS Safety Report 20056367 (Version 1)
Quarter: 2021Q4

REPORT INFORMATION
  Report Type: Report from Study
  Country: US (occurrence: US)
  Receive Date: 20211111
  Receipt Date: 20211111
  Transmission Date: 20220303
  Serious: Yes (Hospitalization, Other)
  Sender: FDA-Public Use
  Company Number: US-ABBVIE-21K-163-4155178-00

PATIENT
  Sex: Male

DRUGS (1)
  1. IMBRUVICA [Suspect]
     Active Substance: IBRUTINIB
     Indication: Chronic lymphocytic leukaemia
     Route: 048
     Dates: start: 202110

REACTIONS (11)
  - Nephrolithiasis [Unknown]
  - Heart rate decreased [Recovering/Resolving]
  - Hypotension [Recovering/Resolving]
  - Dysphagia [Unknown]
  - Decreased activity [Recovering/Resolving]
  - Atrial fibrillation [Recovered/Resolved]
  - Fungal pharyngitis [Unknown]
  - Headache [Recovering/Resolving]
  - Dyspnoea [Recovering/Resolving]
  - Weight decreased [Unknown]
  - Platelet count decreased [Recovering/Resolving]

NARRATIVE: CASE EVENT DATE: 20210101
